FAERS Safety Report 7252141-1 (Version None)
Quarter: 2011Q1

REPORT INFORMATION
  Report Type: 
  Country: None (occurrence: None)
  Receive Date: 20110128
  Receipt Date: 20100430
  Transmission Date: 20110831
  Serious: No
  Sender: FDA-Public Use
  Company Number: US-ABBOTT-10P-163-0642291-00

PATIENT
  Sex: Male
  Weight: 90.8 kg

DRUGS (3)
  1. PREDNISONE [Concomitant]
     Indication: COLITIS ULCERATIVE
  2. HUMIRA [Suspect]
     Indication: COLITIS ULCERATIVE
     Route: 058
     Dates: start: 20100217
  3. FLUTICASONE PROPIONATE [Concomitant]
     Indication: SEASONAL ALLERGY
     Route: 045

REACTIONS (2)
  - DIARRHOEA [None]
  - HAEMATOCHEZIA [None]
